FAERS Safety Report 7640637-X (Version None)
Quarter: 2011Q3

REPORT INFORMATION
  Report Type: 
  Country: None (occurrence: None)
  Receive Date: 20110721
  Receipt Date: 20110706
  Transmission Date: 20111222
  Serious: Yes (Life-Threatening)
  Sender: FDA-Public Use
  Company Number: JP-2011-10395

PATIENT
  Age: 70 Year
  Sex: Male
  Weight: 71 kg

DRUGS (11)
  1. SIMVASTATIN [Concomitant]
  2. ELSAMET (PIPSISSEWA EXTRACT_JAPANESE ASPEN EXTRACT COMBINED DRUG) [Concomitant]
  3. OLOPATADINE HYDROCHLORIDE [Concomitant]
  4. TAMSULOSIN HYDROCHLORIDE [Concomitant]
  5. MICARDIS [Concomitant]
  6. PLETAL [Suspect]
     Indication: CEREBRAL INFARCTION
     Dosage: 100 MG, BID, ORAL
     Route: 048
     Dates: start: 20110106, end: 20110219
  7. ESTAZOLAM [Concomitant]
  8. NIFEDIPINE CR (NIFEDIPINE) [Concomitant]
  9. ZOLPIDEM TARTRATE [Concomitant]
  10. METHYCOBAL (MECOBALAMIN) [Concomitant]
  11. PRIMPERAN INJ [Concomitant]

REACTIONS (9)
  - BACTERIAL INFECTION [None]
  - DIFFUSE ALVEOLAR DAMAGE [None]
  - INTERSTITIAL LUNG DISEASE [None]
  - RHEUMATOID FACTOR POSITIVE [None]
  - ANTI-CYCLIC CITRULLINATED PEPTIDE ANTIBODY POSITIVE [None]
  - ACUTE LUNG INJURY [None]
  - ACUTE RESPIRATORY DISTRESS SYNDROME [None]
  - RHEUMATOID LUNG [None]
  - INFLUENZA [None]
